FAERS Safety Report 5957073-4 (Version None)
Quarter: 2008Q4

REPORT INFORMATION
  Report Type: 
  Country: None (occurrence: None)
  Receive Date: 20081118
  Receipt Date: 20081110
  Transmission Date: 20090506
  Serious: Yes (Disabling, Other)
  Sender: FDA-Public Use
  Company Number: PHHY2008CH27701

PATIENT
  Age: 78 Year
  Sex: Female

DRUGS (7)
  1. ZOMETA [Suspect]
     Indication: BREAST CANCER FEMALE
     Dosage: 4 MG, QMO
     Route: 042
     Dates: start: 20040701, end: 20080601
  2. FOSAMAX [Suspect]
     Indication: OSTEOPOROSIS
     Dosage: 70 MG, QD
     Dates: start: 20040901, end: 20080801
  3. DIAMICRON [Concomitant]
     Indication: DIABETES MELLITUS
     Dosage: UNK
  4. FEMARA [Concomitant]
     Indication: BREAST CANCER FEMALE
     Dosage: UNK
     Dates: start: 20040501, end: 20070901
  5. FASLODEX [Concomitant]
     Indication: BREAST CANCER FEMALE
     Dosage: UNK
     Dates: start: 20060901, end: 20070401
  6. MEGESTAT [Concomitant]
     Indication: BREAST CANCER FEMALE
     Dosage: UNK
     Dates: start: 20070401, end: 20071001
  7. XELODA [Concomitant]
     Indication: BREAST CANCER FEMALE
     Dosage: UNK
     Dates: start: 20071001

REACTIONS (5)
  - BONE LESION [None]
  - DEBRIDEMENT [None]
  - DENTAL PROSTHESIS USER [None]
  - DRUG PRESCRIBING ERROR [None]
  - OSTEONECROSIS [None]
